FAERS Safety Report 11350474 (Version 2)
Quarter: 2015Q3

REPORT INFORMATION
  Report Type: Spontaneous
  Country: US (occurrence: US)
  Receive Date: 20150807
  Receipt Date: 20150807
  Transmission Date: 20151125
  Serious: Yes (Hospitalization, Other)
  Sender: FDA-Public Use
  Company Number: US-PFIZER INC-2015253918

PATIENT
  Age: 40 Year
  Sex: Female

DRUGS (3)
  1. THIOTHIXENE HCL [Suspect]
     Active Substance: THIOTHIXENE HYDROCHLORIDE
     Dosage: 10 MG, 2X/DAY
  2. FLUOXETINE [Interacting]
     Active Substance: FLUOXETINE\FLUOXETINE HYDROCHLORIDE
     Dosage: 20 MG, DAILY (AT BEDTIME)
  3. BENZTROPINE [Interacting]
     Active Substance: BENZTROPINE
     Indication: AKATHISIA
     Dosage: 2 MG, 2X/DAY

REACTIONS (2)
  - Urinary retention [Recovered/Resolved]
  - Drug interaction [Unknown]
